FAERS Safety Report 8601345-1 (Version None)
Quarter: 2012Q3

REPORT INFORMATION
  Report Type: 
  Country: None (occurrence: None)
  Receive Date: 20120817
  Receipt Date: 20120807
  Transmission Date: 20120928
  Serious: Yes (Life-Threatening, Hospitalization, Other)
  Sender: FDA-Public Use
  Company Number: CA-BRISTOL-MYERS SQUIBB COMPANY-16645772

PATIENT
  Age: 72 Year
  Sex: Male

DRUGS (12)
  1. METFORMIN HCL [Concomitant]
  2. FOLIC ACID [Concomitant]
  3. METHOTREXATE [Suspect]
  4. PREDNISONE TAB [Suspect]
  5. VERAPAMIL [Concomitant]
  6. GLYBURIDE [Concomitant]
  7. VITAMIN B-12 [Concomitant]
  8. RIVASA [Concomitant]
  9. AVALIDE [Concomitant]
  10. COUMADIN [Concomitant]
  11. ORENCIA [Suspect]
     Indication: RHEUMATOID ARTHRITIS
     Route: 042
     Dates: start: 20100101, end: 20120402
  12. LIPITOR [Concomitant]

REACTIONS (3)
  - IMMOBILE [None]
  - COLON CANCER [None]
  - SEPTIC SHOCK [None]
